FAERS Safety Report 5594327-8 (Version None)
Quarter: 2008Q1

REPORT INFORMATION
  Report Type: 
  Country: None (occurrence: None)
  Receive Date: 20080117
  Receipt Date: 20080109
  Transmission Date: 20080703
  Serious: Yes (Death, Other)
  Sender: FDA-Public Use
  Company Number: PHBS2008IR00748

PATIENT
  Age: 36 Year
  Sex: Male

DRUGS (6)
  1. AZATHIOPRINE [Suspect]
     Indication: RENAL TRANSPLANT
     Dosage: 4 MG/KG/D
     Route: 065
  2. PREDNISONE TAB [Suspect]
     Indication: RENAL TRANSPLANT
     Dosage: 25 MG/D
     Route: 065
  3. MYCOPHENOLATE MOFETIL [Suspect]
     Indication: RENAL TRANSPLANT
     Dosage: 1 G, Q12H
  4. CYCLOSPORINE [Suspect]
     Indication: RENAL TRANSPLANT
     Dosage: 100 MG, Q12H
     Route: 065
  5. CYCLOSPORINE [Suspect]
     Dosage: 8 MG/KG/D
     Route: 065
  6. PREDNISOLONE [Suspect]
     Indication: RENAL TRANSPLANT
     Dosage: 7.5 MG/D

REACTIONS (21)
  - BIOPSY LUNG [None]
  - BLOOD CREATININE INCREASED [None]
  - BREATH SOUNDS ABNORMAL [None]
  - CHEST X-RAY ABNORMAL [None]
  - COMPUTERISED TOMOGRAM ABNORMAL [None]
  - DIFFUSE ALVEOLAR DAMAGE [None]
  - DYSPNOEA [None]
  - HAEMOGLOBIN DECREASED [None]
  - HAEMOPTYSIS [None]
  - HEPATITIS [None]
  - KAPOSI'S SARCOMA [None]
  - LUNG NEOPLASM [None]
  - METASTASES TO PLEURA [None]
  - OEDEMA [None]
  - PNEUMONIA [None]
  - PNEUMONIA LIPOID [None]
  - PRODUCTIVE COUGH [None]
  - PULMONARY ALVEOLAR HAEMORRHAGE [None]
  - PYREXIA [None]
  - RESPIRATORY ARREST [None]
  - SPINDLE CELL SARCOMA [None]
